FAERS Safety Report 15190400 (Version 2)
Quarter: 2018Q3

REPORT INFORMATION
  Report Type: Spontaneous
  Country: US (occurrence: US)
  Receive Date: 20180724
  Receipt Date: 20180829
  Transmission Date: 20181010
  Serious: Yes (Other)
  Sender: FDA-Public Use
  Company Number: US-PFIZER INC-2018294333

PATIENT
  Age: 46 Year
  Sex: Female
  Weight: 86.17 kg

DRUGS (1)
  1. IBRANCE [Suspect]
     Active Substance: PALBOCICLIB
     Indication: BREAST CANCER METASTATIC
     Dosage: 125 MG, CYCLIC (DAYS 1?21 Q 28 DAYS)
     Route: 048
     Dates: start: 201805, end: 201805

REACTIONS (13)
  - Asthenia [Unknown]
  - Psychiatric symptom [Unknown]
  - Weight decreased [Unknown]
  - Haematochezia [Unknown]
  - Nausea [Unknown]
  - Malaise [Unknown]
  - Diarrhoea [Unknown]
  - Hypotension [Unknown]
  - Back pain [Unknown]
  - Burning sensation [Unknown]
  - White blood cell count decreased [Unknown]
  - Fungal infection [Unknown]
  - Pruritus [Unknown]

NARRATIVE: CASE EVENT DATE: 2018
